FAERS Safety Report 10568876 (Version 17)
Quarter: 2015Q3

REPORT INFORMATION
  Report Type: Report from Study
  Country: FR (occurrence: FR)
  Receive Date: 20141106
  Receipt Date: 20150813
  Transmission Date: 20151125
  Serious: Yes (Life-Threatening, Hospitalization)
  Sender: FDA-Public Use
  Company Number: FR-009507513-1407FRA011831

PATIENT
  Age: 25 Year
  Sex: Male
  Weight: 91 kg

DRUGS (13)
  1. BACTRIM [Concomitant]
     Active Substance: SULFAMETHOXAZOLE\TRIMETHOPRIM
     Indication: ANTIBIOTIC THERAPY
     Dosage: TOTAL DAILY DOSE: 342 MG (684 MG QOD)
     Route: 048
     Dates: start: 201405
  2. COVERSYL (PERINDOPRIL ARGININE) [Concomitant]
     Active Substance: PERINDOPRIL
     Indication: HYPERTENSION
     Dosage: 20 MG, QD
     Route: 048
     Dates: start: 201405, end: 20140801
  3. BI-PROFENID [Concomitant]
     Active Substance: KETOPROFEN
     Indication: ANTIINFLAMMATORY THERAPY
     Dosage: STRENGTH: 100 (UNITS UNKNOWN)
     Route: 048
     Dates: start: 20140715, end: 20140801
  4. ZELITREX [Concomitant]
     Active Substance: VALACYCLOVIR HYDROCHLORIDE
     Indication: HERPES SIMPLEX
     Dosage: 500 MG, BID
     Route: 048
     Dates: start: 201405
  5. INNOHEP [Concomitant]
     Active Substance: TINZAPARIN SODIUM
     Indication: ANTICOAGULANT THERAPY
     Dosage: 0.7 ML, QD; FORMULATION: SOLUTION
     Route: 003
     Dates: start: 201405
  6. OXYCONTIN [Suspect]
     Active Substance: OXYCODONE HYDROCHLORIDE
     Indication: BACK PAIN
     Dosage: 20 MG, BID, FORMULATION: PILL
     Route: 048
     Dates: start: 20141121
  7. DOLIPRANE [Concomitant]
     Active Substance: ACETAMINOPHEN
     Indication: ANALGESIC THERAPY
     Dosage: 1 G, BID
     Route: 048
     Dates: start: 201405, end: 20140801
  8. PEMBROLIZUMAB. [Suspect]
     Active Substance: PEMBROLIZUMAB
     Indication: HODGKIN^S DISEASE
     Dosage: 10 MG/KG, QOW
     Route: 042
     Dates: start: 20140718, end: 20140718
  9. PHYTONADIONE. [Concomitant]
     Active Substance: PHYTONADIONE
     Indication: FACTOR VII DEFICIENCY
     Dosage: UNK, ONCE
     Route: 048
     Dates: start: 20140718, end: 20140718
  10. FUNGIZONE [Concomitant]
     Active Substance: AMPHOTERICIN B
     Indication: FUNGAL INFECTION
     Dosage: 1 CAPSULE, TID
     Route: 048
     Dates: start: 20140709, end: 20140726
  11. PEMBROLIZUMAB. [Suspect]
     Active Substance: PEMBROLIZUMAB
     Dosage: 10 MG/KG, QOW
     Route: 042
     Dates: start: 20140801
  12. MORPHINE [Suspect]
     Active Substance: MORPHINE
     Indication: AXILLARY PAIN
     Dosage: 5 MG, ONCE
     Route: 042
     Dates: start: 20140719, end: 20140720
  13. LEDERFOLINE [Concomitant]
     Active Substance: LEUCOVORIN CALCIUM
     Indication: HEREDITARY DISORDER
     Dosage: TOTAL DAILY DOSE: 5 MG, (10 MG QOD)
     Route: 048
     Dates: start: 201405, end: 20140801

REACTIONS (4)
  - Axillary pain [Recovered/Resolved]
  - Hypoxia [Recovered/Resolved]
  - Urinary retention [Recovered/Resolved]
  - Dyspnoea [Recovered/Resolved]

NARRATIVE: CASE EVENT DATE: 20140719
